FAERS Safety Report 4907896-5 (Version None)
Quarter: 2006Q1

REPORT INFORMATION
  Report Type: 
  Country: None (occurrence: None)
  Receive Date: 20060210
  Receipt Date: 20060203
  Transmission Date: 20060701
  Serious: Yes (Death, Hospitalization)
  Sender: FDA-Public Use
  Company Number: GR-AVENTIS-200611103GDDC

PATIENT
  Age: 62 Year
  Sex: Male

DRUGS (1)
  1. DOCETAXEL [Suspect]
     Indication: NEOPLASM MALIGNANT
     Dosage: DOSE: UNK
     Route: 042

REACTIONS (1)
  - WERNICKE'S ENCEPHALOPATHY [None]
